FAERS Safety Report 14375785 (Version 1)
Quarter: 2018Q1

REPORT INFORMATION
  Report Type: Spontaneous
  Country: PL (occurrence: PL)
  Receive Date: 20180111
  Receipt Date: 20180111
  Transmission Date: 20180509
  Serious: Yes (Other)
  Sender: FDA-Public Use
  Company Number: PL-MYLANLABS-2018M1000114

PATIENT
  Sex: Female

DRUGS (1)
  1. KLACID, 500 MG, PROSZEK DO SPORZ?DZANIA ROZTWORU DO INFUZJI [Suspect]
     Active Substance: CLARITHROMYCIN
     Indication: PRODUCT USED FOR UNKNOWN INDICATION
     Dosage: 500 MG, UNK
     Route: 042

REACTIONS (3)
  - Dysgeusia [Unknown]
  - Hypersensitivity [Unknown]
  - Dyspnoea [Unknown]
